FAERS Safety Report 14753781 (Version 5)
Quarter: 2018Q3

REPORT INFORMATION
  Report Type: Spontaneous
  Country: US (occurrence: US)
  Receive Date: 20180412
  Receipt Date: 20180914
  Transmission Date: 20181010
  Serious: Yes (Other)
  Sender: FDA-Public Use
  Company Number: US-BRISTOL-MYERS SQUIBB COMPANY-BMS-2018-031834

PATIENT
  Sex: Female
  Weight: 150.57 kg

DRUGS (1)
  1. ORENCIA [Suspect]
     Active Substance: ABATACEPT
     Indication: RHEUMATOID ARTHRITIS
     Dosage: 125 MG, QWK
     Route: 058
     Dates: start: 201801

REACTIONS (7)
  - Lyme disease [Unknown]
  - Fatigue [Unknown]
  - Arthropod bite [Unknown]
  - Ovarian cyst [Unknown]
  - Adverse event [Recovering/Resolving]
  - Nausea [Unknown]
  - Drug ineffective [Unknown]
